FAERS Safety Report 8510224-X (Version None)
Quarter: 2012Q3

REPORT INFORMATION
  Report Type: 
  Country: None (occurrence: None)
  Receive Date: 20120713
  Receipt Date: 20120710
  Transmission Date: 20120928
  Serious: Yes (Life-Threatening, Hospitalization)
  Sender: FDA-Public Use
  Company Number: FR-PFIZER INC-2012164521

PATIENT
  Age: 65 Year
  Sex: Male
  Weight: 78 kg

DRUGS (2)
  1. EVEROLIMUS [Suspect]
     Indication: NEOPLASM
     Dosage: 5 MG, 1X/DAY
     Dates: start: 20110920
  2. AXITINIB [Suspect]
     Indication: NEOPLASM
     Dosage: 6 MG, 1X/DAY, IN 6 INTAKES
     Dates: start: 20110913

REACTIONS (2)
  - ACUTE PULMONARY OEDEMA [None]
  - CARDIOMYOPATHY [None]
